FAERS Safety Report 9165911 (Version 1)
Quarter: 2013Q1

REPORT INFORMATION
  Report Type: Spontaneous
  Country: US (occurrence: None)
  Receive Date: 20130314
  Receipt Date: 20130314
  Transmission Date: 20140127
  Serious: No
  Sender: FDA-Public Use
  Company Number: None

PATIENT
  Age: 59 Year
  Sex: Female

DRUGS (2)
  1. ABRAXANE [Suspect]
     Indication: PANCREATIC CARCINOMA
     Route: 042
     Dates: start: 20130228
  2. LEUCOVORIN CALCIUM [Suspect]
     Indication: PANCREATIC CARCINOMA
     Route: 042
     Dates: start: 20130228

REACTIONS (8)
  - Abdominal pain [None]
  - Lethargy [None]
  - Hypotension [None]
  - Urine output decreased [None]
  - Confusional state [None]
  - Urosepsis [None]
  - Mucosal inflammation [None]
  - Neutrophil count decreased [None]
